FAERS Safety Report 5586578-3 (Version None)
Quarter: 2008Q1

REPORT INFORMATION
  Report Type: 
  Country: None (occurrence: None)
  Receive Date: 20080110
  Receipt Date: 20071108
  Transmission Date: 20080703
  Serious: Yes (Hospitalization)
  Sender: FDA-Public Use
  Company Number: US-BAYER-US-2007-035148

PATIENT
  Age: 41 Year
  Sex: Female
  Weight: 141 kg

DRUGS (4)
  1. YAZ [Suspect]
     Dates: start: 20061101
  2. TRAMADOL HCL [Concomitant]
  3. ANTIHYPERTENSIVES [Concomitant]
  4. AMBIEN [Concomitant]

REACTIONS (2)
  - DEEP VEIN THROMBOSIS [None]
  - PULMONARY EMBOLISM [None]
